FAERS Safety Report 7197466-3 (Version None)
Quarter: 2010Q4

REPORT INFORMATION
  Report Type: 
  Country: None (occurrence: None)
  Receive Date: 20101227
  Receipt Date: 20101222
  Transmission Date: 20110411
  Serious: Yes (Hospitalization)
  Sender: FDA-Public Use
  Company Number: FR-BRISTOL-MYERS SQUIBB COMPANY-15457948

PATIENT
  Age: 77 Year
  Sex: Male

DRUGS (3)
  1. COUMADIN [Suspect]
     Dates: start: 20101101
  2. FLECAINIDE ACETATE [Concomitant]
  3. KENZEN [Concomitant]

REACTIONS (2)
  - ERYSIPELAS [None]
  - PAIN [None]
